FAERS Safety Report 4431817-5 (Version None)
Quarter: 2004Q3

REPORT INFORMATION
  Report Type: 
  Country: None (occurrence: None)
  Receive Date: 20040825
  Receipt Date: 20040818
  Transmission Date: 20050211
  Serious: Yes (Death)
  Sender: FDA-Public Use
  Company Number: US-JNJFOC-20040601951

PATIENT
  Age: 83 Year
  Sex: Female

DRUGS (11)
  1. DURAGESIC [Suspect]
     Route: 062
  2. NEURONTIN [Concomitant]
     Route: 049
  3. REGLAN [Concomitant]
     Route: 049
  4. PEPCID [Concomitant]
     Route: 049
  5. PERCOCET [Concomitant]
     Route: 049
  6. PERCOCET [Concomitant]
     Dosage: 5 MG OXYCODONE/325 MG ACETAMINOPHEN, ONE TABLET FOUR TIMES DAILY AS NEEDED
     Route: 049
  7. OXYCONTIN [Concomitant]
     Route: 049
  8. ALPHAGAN [Concomitant]
     Dosage: ONE DROP BOTH EYES TWICE DAILY
     Route: 047
  9. XALATAN [Concomitant]
     Dosage: ONE DROP BOTH EYES AT NIGHT
     Route: 047
  10. MOM [Concomitant]
     Dosage: AT NIGHT
     Route: 049
  11. TIMOLOL MALEATE [Concomitant]
     Dosage: ONE DROP BOTH EYES TWICE DAILY
     Route: 047

REACTIONS (1)
  - MALIGNANT NEOPLASM PROGRESSION [None]
